FAERS Safety Report 5810800-9 (Version None)
Quarter: 2008Q3

REPORT INFORMATION
  Report Type: 
  Country: None (occurrence: None)
  Receive Date: 20080709
  Receipt Date: 20080623
  Transmission Date: 20090109
  Serious: Yes (Hospitalization)
  Sender: FDA-Public Use
  Company Number: GXKR2008JP05011

PATIENT
  Age: 81 Year
  Sex: Female
  Weight: 45 kg

DRUGS (2)
  1. THEOPHYLLINE [Suspect]
     Indication: BRONCHITIS CHRONIC
     Dosage: 400 MG, QD,
  2. ANTITUSSIVES (NO INGREDIENTS/SUBSTANCES) [Concomitant]

REACTIONS (12)
  - BLOOD CREATINE PHOSPHOKINASE INCREASED [None]
  - BODY TEMPERATURE INCREASED [None]
  - CLONIC CONVULSION [None]
  - COMPLEX PARTIAL SEIZURES [None]
  - DIARRHOEA [None]
  - ENCEPHALOPATHY [None]
  - ENTERITIS [None]
  - INCONTINENCE [None]
  - PARALYSIS FLACCID [None]
  - STATUS EPILEPTICUS [None]
  - VITAMIN B6 DECREASED [None]
  - WHITE BLOOD CELL COUNT INCREASED [None]
